FAERS Safety Report 16941941 (Version 1)
Quarter: 2019Q4

REPORT INFORMATION
  Report Type: Report from Study
  Country: US (occurrence: US)
  Receive Date: 20191021
  Receipt Date: 20191021
  Transmission Date: 20200122
  Serious: Yes (Other)
  Sender: FDA-Public Use
  Company Number: US-GLAXOSMITHKLINE-2019-TSO03024-US

PATIENT
  Age: 49 Year
  Sex: Female
  Weight: 75.74 kg

DRUGS (1)
  1. NIRAPARIB [Suspect]
     Active Substance: NIRAPARIB
     Indication: OVARIAN CANCER
     Dosage: 200 MG, AT BED TIME WITHOUT FOOD
     Route: 048
     Dates: start: 20190801, end: 201910

REACTIONS (8)
  - Diverticulitis [Unknown]
  - Vomiting [Unknown]
  - Headache [Recovering/Resolving]
  - Diarrhoea [Unknown]
  - Abdominal pain lower [Unknown]
  - Dyspepsia [Unknown]
  - Increased tendency to bruise [Unknown]
  - Product dose omission [Unknown]

NARRATIVE: CASE EVENT DATE: 201910
